FAERS Safety Report 6523797-3 (Version None)
Quarter: 2009Q4

REPORT INFORMATION
  Report Type: 
  Country: None (occurrence: None)
  Receive Date: 20091231
  Receipt Date: 20091221
  Transmission Date: 20100525
  Serious: Yes (Hospitalization)
  Sender: FDA-Public Use
  Company Number: US-ROCHE-676893

PATIENT
  Age: 54 Year
  Sex: Female
  Weight: 49 kg

DRUGS (5)
  1. BEVACIZUMAB [Suspect]
     Dosage: TOTAL DOSE ADMINISTERED IN COURSE NUMBER 3: 472 MG, LAST ADMINISTERED DATE: 9 DEC 2009
     Route: 065
     Dates: start: 20091015
  2. CARBOPLATIN [Suspect]
     Indication: MALIGNANT MELANOMA
     Dosage: TOTAL DOSE ADMINISTERED THIS COURSE: 524 MG, LAST ADMINISTERED DATE: 09 DEC 2009.
     Route: 065
     Dates: start: 20091015
  3. PACLITAXEL [Suspect]
     Indication: MALIGNANT MELANOMA
     Dosage: TOTAL DOSE  ADMINISTERED THIS COURSE: 123 MG, LAST ADMINISTERED DATE: 09 DEC 2009.
     Route: 065
     Dates: start: 20091015
  4. OXYCONTIN [Concomitant]
  5. MORPHINE [Concomitant]

REACTIONS (3)
  - CYSTITIS [None]
  - HYPOXIA [None]
  - NAUSEA [None]
